FAERS Safety Report 7946315-1 (Version None)
Quarter: 2011Q4

REPORT INFORMATION
  Report Type: 
  Country: None (occurrence: None)
  Receive Date: 20111122
  Receipt Date: 20111111
  Transmission Date: 20120403
  Serious: Yes (Death)
  Sender: FDA-Public Use
  Company Number: DSA_48213_2011

PATIENT
  Age: 76 Year
  Sex: Female

DRUGS (7)
  1. METFORMIN HCL [Concomitant]
  2. OMEPRAZOL A [Concomitant]
  3. ANAFRANIL [Suspect]
     Indication: DEPRESSION
     Dosage: 75 MG QD ORAL
     Route: 048
     Dates: start: 20100621
  4. LORAZEPAM [Concomitant]
  5. GLYBURIDE [Concomitant]
  6. BUPROPION HYDROCHLORIDE [Suspect]
     Indication: DEPRESSION
     Dosage: 150 MG QD ORAL
     Route: 048
     Dates: start: 20100301
  7. LORMETAZEPAM [Concomitant]

REACTIONS (4)
  - HYPERTHERMIA [None]
  - TACHYCARDIA [None]
  - DEPRESSED LEVEL OF CONSCIOUSNESS [None]
  - DYSARTHRIA [None]
